FAERS Safety Report 9430499 (Version 2)
Quarter: 2013Q3

REPORT INFORMATION
  Report Type: Spontaneous
  Country: US (occurrence: US)
  Receive Date: 20130730
  Receipt Date: 20130812
  Transmission Date: 20140515
  Serious: Yes (Hospitalization)
  Sender: FDA-Public Use
  Company Number: US-GILEAD-2013-0080333

PATIENT
  Sex: Female

DRUGS (2)
  1. LETAIRIS [Suspect]
     Indication: PULMONARY HYPERTENSION
     Dates: start: 20130620
  2. LETAIRIS [Suspect]
     Indication: SCLERODERMA
     Dosage: UNK

REACTIONS (4)
  - Scleroderma [Unknown]
  - Cardiac failure [Unknown]
  - Drug ineffective [Not Recovered/Not Resolved]
  - Nasal congestion [Not Recovered/Not Resolved]
